FAERS Safety Report 10248132 (Version 1)
Quarter: 2014Q2

REPORT INFORMATION
  Report Type: Spontaneous
  Country: US (occurrence: US)
  Receive Date: 20140619
  Receipt Date: 20140619
  Transmission Date: 20141212
  Serious: No
  Sender: FDA-Public Use
  Company Number: US-009507513-1406USA004018

PATIENT
  Age: 36 Year
  Sex: Female
  Weight: 81.18 kg

DRUGS (1)
  1. IMPLANON [Suspect]
     Indication: CONTRACEPTION
     Dosage: UNK
     Dates: start: 201108

REACTIONS (4)
  - Increased appetite [Unknown]
  - Weight increased [Unknown]
  - Alopecia [Unknown]
  - Mood swings [Unknown]
